FAERS Safety Report 16332591 (Version 1)
Quarter: 2019Q2

REPORT INFORMATION
  Report Type: Spontaneous
  Country: ES (occurrence: ES)
  Receive Date: 20190520
  Receipt Date: 20190520
  Transmission Date: 20190711
  Serious: Yes (Hospitalization)
  Sender: FDA-Public Use
  Company Number: ES-AMGEN-ESPSP2019076299

PATIENT
  Age: 72 Year
  Sex: Female

DRUGS (10)
  1. DOXAZOSIN [Concomitant]
     Active Substance: DOXAZOSIN\DOXAZOSIN MESYLATE
     Route: 048
  2. ESOMEPRAZOL CINFA [Concomitant]
     Route: 048
  3. ALOPURINOL NORMON [Concomitant]
     Route: 048
  4. SIMVASTATIN CINFA [Concomitant]
     Route: 048
  5. HIGROTONA [Concomitant]
     Active Substance: CHLORTHALIDONE
     Route: 048
  6. PROLIA [Suspect]
     Active Substance: DENOSUMAB
     Indication: OSTEOPOROSIS
     Dosage: 60 MILLIGRAM, Q6MO
     Route: 058
     Dates: start: 20190107, end: 20190311
  7. NOVONORM [Concomitant]
     Active Substance: REPAGLINIDE
     Dosage: 1 MILLIGRAM, Q8H
     Route: 048
  8. CAPENON [Concomitant]
     Active Substance: AMLODIPINE BESYLATE\OLMESARTAN MEDOXOMIL
     Dosage: 1 DOSAGE FORM, QD
     Route: 048
  9. ACETYLSALICYLIC ACID [Concomitant]
     Active Substance: ASPIRIN
     Route: 048
  10. ALDACTONE [Concomitant]
     Active Substance: SPIRONOLACTONE
     Dosage: 25 MILLIGRAM, Q8H
     Route: 048
     Dates: end: 20190318

REACTIONS (2)
  - Hypomagnesaemia [Recovered/Resolved]
  - Hypocalcaemia [Recovered/Resolved]

NARRATIVE: CASE EVENT DATE: 20190311
